FAERS Safety Report 8924518 (Version 1)
Quarter: 2012Q4

REPORT INFORMATION
  Report Type: 
  Country: FR (occurrence: FR)
  Receive Date: 20121126
  Receipt Date: 20121126
  Transmission Date: 20130627
  Serious: Yes (Other)
  Sender: FDA-Public Use
  Company Number: FR-PFIZER INC-2012266199

PATIENT
  Age: 64 Year
  Sex: Female
  Weight: 60 kg

DRUGS (2)
  1. LYRICA [Suspect]
     Indication: NEURALGIA
     Dosage: 75 mg, 2x/day
     Dates: start: 201101
  2. DOLIPRANE [Concomitant]
     Indication: PAIN
     Dosage: 3 g divided into 3 intakes daily
     Route: 048
     Dates: start: 2000

REACTIONS (3)
  - Loss of consciousness [Recovering/Resolving]
  - Fall [Recovering/Resolving]
  - Hand fracture [Recovering/Resolving]
